FAERS Safety Report 9809065 (Version 1)
Quarter: 2014Q1

REPORT INFORMATION
  Report Type: Spontaneous
  Country: FR (occurrence: FR)
  Receive Date: 20140110
  Receipt Date: 20140110
  Transmission Date: 20141002
  Serious: Yes (Hospitalization)
  Sender: FDA-Public Use
  Company Number: FR-ASTRAZENECA-2014SE00362

PATIENT
  Age: 86 Year
  Sex: Male

DRUGS (12)
  1. INEXIUM [Suspect]
     Route: 048
     Dates: end: 20131114
  2. XARELTO [Suspect]
     Route: 048
     Dates: start: 20130823, end: 20131005
  3. ZYLORIC [Suspect]
     Route: 048
     Dates: end: 20131114
  4. SINGULAIR [Suspect]
     Route: 048
     Dates: end: 20131114
  5. LASILIX [Suspect]
     Route: 048
     Dates: end: 20131114
  6. JOSIR [Suspect]
     Route: 048
     Dates: end: 20131114
  7. INSPRA [Suspect]
     Route: 048
     Dates: end: 20131114
  8. KARDEGIC [Concomitant]
  9. PROZAC [Concomitant]
     Route: 048
  10. XANAX [Concomitant]
     Route: 048
  11. PLAVIX [Concomitant]
     Route: 048
  12. LEVOTHYROX [Concomitant]

REACTIONS (1)
  - Drug reaction with eosinophilia and systemic symptoms [Recovering/Resolving]
